FAERS Safety Report 10187944 (Version 1)
Quarter: 2014Q2

REPORT INFORMATION
  Report Type: Spontaneous
  Country: US (occurrence: US)
  Receive Date: 20140522
  Receipt Date: 20140522
  Transmission Date: 20141212
  Serious: No
  Sender: FDA-Public Use
  Company Number: US-SA-2013SA104866

PATIENT
  Age: 67 Year
  Sex: Male
  Weight: 81.64 kg

DRUGS (3)
  1. LANTUS SOLOSTAR [Suspect]
     Route: 051
  2. APIDRA SOLOSTAR [Suspect]
     Indication: TYPE 1 DIABETES MELLITUS
     Route: 058
  3. SOLOSTAR [Concomitant]
     Indication: TYPE 1 DIABETES MELLITUS

REACTIONS (3)
  - Adverse event [Unknown]
  - Blood glucose abnormal [Unknown]
  - Expired product administered [Unknown]
